FAERS Safety Report 6418065-4 (Version None)
Quarter: 2009Q4

REPORT INFORMATION
  Report Type: 
  Country: None (occurrence: None)
  Receive Date: 20091026
  Receipt Date: 20091013
  Transmission Date: 20100525
  Serious: Yes (Other)
  Sender: FDA-Public Use
  Company Number: ADR37942009

PATIENT
  Age: 61 Year
  Sex: Male

DRUGS (4)
  1. SIMVASTATIN [Suspect]
     Dosage: 10 MG, ORAL
     Route: 048
     Dates: start: 20041007, end: 20071219
  2. ASPIRIN [Concomitant]
  3. METFORMIN HCL [Concomitant]
  4. PERINDOPRLL 4 MG [Concomitant]

REACTIONS (1)
  - ERECTILE DYSFUNCTION [None]
